FAERS Safety Report 12240304 (Version 3)
Quarter: 2016Q3

REPORT INFORMATION
  Report Type: Report from Study
  Country: US (occurrence: US)
  Receive Date: 20160405
  Receipt Date: 20160804
  Transmission Date: 20161109
  Serious: Yes (Hospitalization, Other)
  Sender: FDA-Public Use
  Company Number: US-BIOGEN-2016BI00213187

PATIENT
  Age: 43 Year
  Sex: Female

DRUGS (2)
  1. TYSABRI [Suspect]
     Active Substance: NATALIZUMAB
     Indication: MULTIPLE SCLEROSIS
     Dosage: INFUSED OVER 1 HOUR
     Route: 042
     Dates: start: 20151221
  2. TEGRETOL [Concomitant]
     Active Substance: CARBAMAZEPINE
     Indication: SEIZURE
     Route: 065

REACTIONS (7)
  - Seizure [Unknown]
  - Lip blister [Unknown]
  - Lip exfoliation [Unknown]
  - Erythema [Unknown]
  - Anaphylactic shock [Recovered/Resolved]
  - Drug hypersensitivity [Unknown]
  - Skin lesion [Unknown]

NARRATIVE: CASE EVENT DATE: 20160324
